FAERS Safety Report 10009957 (Version 1)
Quarter: 2014Q1

REPORT INFORMATION
  Report Type: Other
  Country: US (occurrence: US)
  Receive Date: 20140312
  Receipt Date: 20140312
  Transmission Date: 20141002
  Serious: Yes (Other)
  Sender: FDA-Public Use
  Company Number: US-INCYTE CORPORATION-2013IN000522

PATIENT
  Sex: Female

DRUGS (2)
  1. JAKAFI [Suspect]
     Dosage: 15 MG, BID
     Dates: start: 20120813
  2. JAKAFI [Suspect]
     Dosage: 10 MG, BID

REACTIONS (1)
  - Transfusion [Unknown]
